FAERS Safety Report 16819364 (Version 1)
Quarter: 2019Q3

REPORT INFORMATION
  Report Type: Spontaneous
  Country: US (occurrence: US)
  Receive Date: 20190917
  Receipt Date: 20190917
  Transmission Date: 20191005
  Serious: No
  Sender: FDA-Public Use
  Company Number: US-TEVA-2019-US-1107410

PATIENT
  Age: 77 Year
  Sex: Male

DRUGS (3)
  1. TORASEMIDE [Suspect]
     Active Substance: TORSEMIDE
     Dosage: EVERY OTHER DAY
     Dates: start: 20190823
  2. TORASEMIDE [Suspect]
     Active Substance: TORSEMIDE
     Dosage: PER DAY
     Dates: start: 20190802
  3. TORASEMIDE [Suspect]
     Active Substance: TORSEMIDE
     Dosage: PER DAY
     Dates: start: 20190805

REACTIONS (6)
  - Drug ineffective [Unknown]
  - Muscle spasms [Not Recovered/Not Resolved]
  - Asthenia [Unknown]
  - Arthralgia [Unknown]
  - Myalgia [Unknown]
  - Peripheral swelling [Unknown]

NARRATIVE: CASE EVENT DATE: 2019
